FAERS Safety Report 6591057-0 (Version None)
Quarter: 2010Q1

REPORT INFORMATION
  Report Type: 
  Country: None (occurrence: None)
  Receive Date: 20100219
  Receipt Date: 20100204
  Transmission Date: 20100710
  Serious: Yes (Other)
  Sender: FDA-Public Use
  Company Number: IE-PFIZER INC-2010015929

PATIENT
  Age: 72 Year
  Sex: Male

DRUGS (9)
  1. LYRICA [Suspect]
     Indication: PAIN IN EXTREMITY
     Dosage: 75 MG, 2X/DAY
     Dates: start: 20100101
  2. LYRICA [Suspect]
     Indication: BURNING SENSATION
  3. LYRICA [Suspect]
     Indication: PARAESTHESIA
  4. CAMCOLIT [Concomitant]
     Dosage: 250 MG, 2X/DAY
  5. EMCOR [Concomitant]
     Indication: BLOOD PRESSURE
     Dosage: 5 MG, 1X/DAY
     Dates: start: 20010101
  6. DIAMICRON [Concomitant]
     Indication: DIABETES MELLITUS
     Dosage: 30 MG, 1X/DAY
  7. LEXOTAN [Concomitant]
     Indication: ANXIETY
     Dosage: 1.5 MG, 1X/DAY
  8. COZAAR [Concomitant]
     Dosage: 50MG/12.5MG, 1X/DAY
  9. COZAAR [Concomitant]
     Dosage: 12.5 MG, 1X/DAY

REACTIONS (6)
  - CHEST DISCOMFORT [None]
  - DIABETES MELLITUS [None]
  - DRY THROAT [None]
  - LOSS OF CONTROL OF LEGS [None]
  - MUSCULOSKELETAL PAIN [None]
  - SENSATION OF HEAVINESS [None]
